FAERS Safety Report 9146227 (Version 2)
Quarter: 2013Q2

REPORT INFORMATION
  Report Type: Spontaneous
  Country: US (occurrence: US)
  Receive Date: 20130307
  Receipt Date: 20130426
  Transmission Date: 20140414
  Serious: Yes (Hospitalization, Other)
  Sender: FDA-Public Use
  Company Number: US-PFIZER INC-2013077059

PATIENT
  Age: 70 Year
  Sex: Female
  Weight: 79 kg

DRUGS (1)
  1. ARTHROTEC [Suspect]
     Indication: OSTEOARTHRITIS
     Dosage: 75/200 MG/MCG, 2X/DAY
     Route: 048
     Dates: end: 201302

REACTIONS (7)
  - Cardiac discomfort [Unknown]
  - Spinal cord compression [Unknown]
  - Cerebrospinal fluid leakage [Unknown]
  - Meningitis [Unknown]
  - Hypertension [Unknown]
  - Blood cholesterol increased [Unknown]
  - Body height decreased [Unknown]
